FAERS Safety Report 5927307-0 (Version None)
Quarter: 2008Q4

REPORT INFORMATION
  Report Type: 
  Country: None (occurrence: None)
  Receive Date: 20081017
  Receipt Date: 20080928
  Transmission Date: 20090506
  Serious: Yes (Disabling)
  Sender: FDA-Public Use
  Company Number: IN-PULSION-2008092801

PATIENT
  Age: 65 Year
  Sex: Female

DRUGS (1)
  1. INDOCYANINE GREEN [Suspect]
     Indication: EYE OPERATION
     Dosage: INTRAOCULAR, SINGLE DOSE
     Route: 031

REACTIONS (3)
  - CONTRAINDICATION TO MEDICAL TREATMENT [None]
  - DRUG TOXICITY [None]
  - RETINAL DEGENERATION [None]
